FAERS Safety Report 5364623-8 (Version None)
Quarter: 2007Q2

REPORT INFORMATION
  Report Type: 
  Country: None (occurrence: None)
  Receive Date: 20070530
  Receipt Date: 20070122
  Transmission Date: 20071010
  Serious: No
  Sender: FDA-Public Use
  Company Number: 2007PV028774

PATIENT
  Age: 67 Year
  Sex: Female
  Weight: 194 kg

DRUGS (6)
  1. BYETTA [Suspect]
     Indication: DIABETES MELLITUS NON-INSULIN-DEPENDENT
     Dosage: 10 MCG;BID;SC; 5 MCG;BID;SC
     Route: 058
     Dates: start: 20061201, end: 20070103
  2. BYETTA [Suspect]
     Indication: DIABETES MELLITUS NON-INSULIN-DEPENDENT
     Dosage: 10 MCG;BID;SC; 5 MCG;BID;SC
     Route: 058
     Dates: start: 20070104
  3. AVANDIA [Concomitant]
  4. GLUCOTROL [Concomitant]
  5. GLUCOPHAGE [Concomitant]
  6. STOMACH MEDICINE [Concomitant]

REACTIONS (10)
  - CHILLS [None]
  - DECREASED APPETITE [None]
  - DIARRHOEA [None]
  - DYSPEPSIA [None]
  - EAR INFECTION [None]
  - EARLY SATIETY [None]
  - HEADACHE [None]
  - NAUSEA [None]
  - SINUSITIS [None]
  - WEIGHT DECREASED [None]
